FAERS Safety Report 13476133 (Version 1)
Quarter: 2017Q2

REPORT INFORMATION
  Report Type: Spontaneous
  Country: US (occurrence: US)
  Receive Date: 20170424
  Receipt Date: 20170424
  Transmission Date: 20170830
  Serious: Yes (Disabling)
  Sender: FDA-Public Use
  Company Number: None

PATIENT
  Age: 40 Year
  Sex: Male
  Weight: 53.91 kg

DRUGS (1)
  1. IVERMECTIN. [Suspect]
     Active Substance: IVERMECTIN
     Indication: LICE INFESTATION
     Dosage: OTHER FREQUENCY:4 TB REPEAT IN 2WK;?
     Route: 048
     Dates: start: 20170224, end: 20170224

REACTIONS (2)
  - Dysgraphia [None]
  - Hypoaesthesia [None]

NARRATIVE: CASE EVENT DATE: 20170224
